FAERS Safety Report 23868097 (Version 2)
Quarter: 2024Q2

REPORT INFORMATION
  Report Type: Spontaneous
  Country: BR (occurrence: BR)
  Receive Date: 20240517
  Receipt Date: 20240528
  Transmission Date: 20240716
  Serious: Yes (Other)
  Sender: FDA-Public Use
  Company Number: BR-ULTRAGENYX PHARMACEUTICAL INC.-BR-UGX-24-00777

PATIENT
  Age: 6 Year
  Sex: Female
  Weight: 23 kg

DRUGS (8)
  1. MEPSEVII [Suspect]
     Active Substance: VESTRONIDASE ALFA-VJBK
     Indication: Mucopolysaccharidosis VII
     Dosage: 09 VIALS, STRENGTH 10MG/ML
  2. MEPSEVII [Suspect]
     Active Substance: VESTRONIDASE ALFA-VJBK
     Dosage: UNK
     Dates: start: 20240105
  3. MEPSEVII [Suspect]
     Active Substance: VESTRONIDASE ALFA-VJBK
     Dosage: UNK
     Dates: start: 20240126
  4. MEPSEVII [Suspect]
     Active Substance: VESTRONIDASE ALFA-VJBK
     Dosage: UNK
     Dates: start: 20240301
  5. MEPSEVII [Suspect]
     Active Substance: VESTRONIDASE ALFA-VJBK
     Dosage: UNK
     Dates: start: 20240317
  6. MEPSEVII [Suspect]
     Active Substance: VESTRONIDASE ALFA-VJBK
     Dosage: UNK
     Dates: start: 20240322
  7. MEPSEVII [Suspect]
     Active Substance: VESTRONIDASE ALFA-VJBK
     Dosage: UNK
     Dates: start: 20240413
  8. VITAMIN D3 [Suspect]
     Active Substance: CHOLECALCIFEROL
     Indication: Product used for unknown indication
     Dosage: UNK

REACTIONS (10)
  - Anaphylactic reaction [Recovered/Resolved]
  - Rhonchi [Unknown]
  - Cough [Unknown]
  - Vomiting [Unknown]
  - Rhinorrhoea [Unknown]
  - Dyspnoea [Unknown]
  - Nasal obstruction [Unknown]
  - Prurigo [Unknown]
  - Influenza like illness [Unknown]
  - Sneezing [Unknown]

NARRATIVE: CASE EVENT DATE: 20240317
